FAERS Safety Report 10694694 (Version 4)
Quarter: 2015Q3

REPORT INFORMATION
  Report Type: Spontaneous
  Country: US (occurrence: US)
  Receive Date: 20150107
  Receipt Date: 20150831
  Transmission Date: 20151125
  Serious: Yes (Hospitalization, Other)
  Sender: FDA-Public Use
  Company Number: US-BAYER-2015-001514

PATIENT
  Age: 25 Year
  Sex: Female
  Weight: 54 kg

DRUGS (1)
  1. MIRENA [Suspect]
     Active Substance: LEVONORGESTREL
     Indication: CONTRACEPTION
     Dosage: 20 MCG/24HR, CONT
     Route: 015
     Dates: start: 200604, end: 20101215

REACTIONS (13)
  - Uterine perforation [None]
  - Infertility female [None]
  - Depression [None]
  - Anxiety [None]
  - Habitual abortion [None]
  - Amenorrhoea [None]
  - Ovarian cyst [None]
  - Injury [None]
  - Abdominal pain [None]
  - Bipolar disorder [Not Recovered/Not Resolved]
  - Off label use of device [None]
  - Emotional distress [None]
  - Device use error [None]

NARRATIVE: CASE EVENT DATE: 2010
